FAERS Safety Report 10153300 (Version 4)
Quarter: 2014Q2

REPORT INFORMATION
  Report Type: Spontaneous
  Country: JP (occurrence: JP)
  Receive Date: 20140505
  Receipt Date: 20140612
  Transmission Date: 20141212
  Serious: Yes (Death, Life-Threatening)
  Sender: FDA-Public Use
  Company Number: JP-SUCAMPO PHARMA AMERICAS, INC-SPI201400313

PATIENT
  Age: 86 Year
  Sex: Female
  Weight: 39 kg

DRUGS (15)
  1. AMITIZA [Suspect]
     Indication: ASTHMA
     Dosage: 24 MCG, BID
     Route: 048
     Dates: start: 20140408, end: 20140411
  2. HOKUNALIN [Concomitant]
     Indication: ASTHMA
     Dosage: 2 MG, QD
     Route: 062
     Dates: end: 20140411
  3. PREDONINE [Concomitant]
     Indication: ASTHMA
     Dosage: 10 MG, QD
     Route: 042
     Dates: start: 20140323, end: 20140331
  4. THEODUR [Concomitant]
     Indication: ASTHMA
     Dosage: 200 MG, BID
     Route: 048
     Dates: start: 20140331, end: 20140411
  5. GASCON [Concomitant]
     Indication: CONSTIPATION
     Dosage: 40 MG, TID
     Route: 048
     Dates: start: 20140331, end: 20140411
  6. MAGLAX [Suspect]
     Indication: CONSTIPATION
     Dosage: 660 MG, TID
     Route: 048
     Dates: start: 20140401, end: 20140411
  7. AMLODIN [Concomitant]
     Indication: HYPERTENSION
     Dosage: 2.5 MG, QD
     Route: 048
     Dates: end: 20140411
  8. PICOSULFATE [Suspect]
     Indication: CONSTIPATION
     Dosage: 10 GTT, TID
     Route: 048
     Dates: start: 20140403, end: 20140411
  9. PREDONINE-1 [Concomitant]
     Indication: ASTHMA
     Dosage: 5 MG, BID
     Route: 048
     Dates: start: 20140401, end: 20140411
  10. DAIKENTYUTO [Suspect]
     Indication: CONSTIPATION
     Dosage: 2.5 G, TID
     Dates: start: 20140331, end: 20140411
  11. UNKNOWN DRUG [Concomitant]
     Indication: CONSTIPATION
     Dosage: 5 MG, TID
     Route: 048
     Dates: start: 20140331, end: 20140411
  12. NEW LECICARBON [Concomitant]
     Indication: CONSTIPATION
     Dosage: 1 DF, QD
     Route: 054
     Dates: start: 20140401, end: 20140402
  13. GLYCERIN F [Concomitant]
     Indication: CONSTIPATION
     Dosage: 1 DF, QD
     Dates: start: 20140403, end: 20140403
  14. GLYCERIN F [Concomitant]
     Dosage: 1 UNK, UNK
     Dates: start: 20140405, end: 20140405
  15. GASMOTIN [Suspect]
     Indication: CONSTIPATION
     Dosage: 5 MG, TID
     Route: 048
     Dates: start: 20140331, end: 20140411

REACTIONS (3)
  - Megacolon [Fatal]
  - Dehydration [Not Recovered/Not Resolved]
  - Diarrhoea [Not Recovered/Not Resolved]
